FAERS Safety Report 4658809-5 (Version None)
Quarter: 2005Q2

REPORT INFORMATION
  Report Type: 
  Country: None (occurrence: None)
  Receive Date: 20050511
  Receipt Date: 20050429
  Transmission Date: 20051028
  Serious: Yes (Hospitalization)
  Sender: FDA-Public Use
  Company Number: CH-ROCHE-403490

PATIENT
  Age: 74 Year
  Sex: Female

DRUGS (12)
  1. TORSEMIDE [Suspect]
     Route: 048
     Dates: start: 20041115, end: 20050401
  2. ZESTRIL [Interacting]
     Route: 048
     Dates: start: 20030516, end: 20050401
  3. ALDOZONE [Interacting]
     Route: 048
     Dates: start: 20041115, end: 20050401
  4. BELOC [Concomitant]
     Route: 050
  5. ZOCOR [Concomitant]
     Route: 048
     Dates: start: 20030516
  6. ASPIRIN [Concomitant]
     Route: 048
     Dates: start: 20030516
  7. SINTROM [Concomitant]
     Route: 050
     Dates: start: 20030516
  8. CORVATON [Concomitant]
     Route: 048
     Dates: start: 20030516
  9. SEROPRAM [Concomitant]
     Route: 048
     Dates: start: 20030516
  10. NEURONTIN [Concomitant]
     Route: 048
  11. DIAMICRON [Concomitant]
     Dates: start: 20030516
  12. DEPONIT [Concomitant]
     Route: 062

REACTIONS (4)
  - DRUG INTERACTION [None]
  - HYPERKALAEMIA [None]
  - METABOLIC ACIDOSIS [None]
  - RENAL FAILURE ACUTE [None]
